FAERS Safety Report 16902165 (Version 1)
Quarter: 2019Q4

REPORT INFORMATION
  Report Type: Spontaneous
  Country: PL (occurrence: PL)
  Receive Date: 20191010
  Receipt Date: 20191010
  Transmission Date: 20200122
  Serious: Yes (Other)
  Sender: FDA-Public Use
  Company Number: PL-TEVA-2019-PL-1118823

PATIENT
  Age: 85 Year
  Sex: Female

DRUGS (5)
  1. AGREGEX 75 MG [Suspect]
     Active Substance: CLOPIDOGREL BISULFATE
     Indication: ISCHAEMIC HEART DISEASE PROPHYLAXIS
     Dosage: DOSE: 1 TABLET
     Route: 048
     Dates: start: 201901, end: 201904
  2. MILURIT 100 MG [Concomitant]
     Indication: POLYCYTHAEMIA VERA
     Dosage: DOSE: 1 TABLET; START DATE: 3 YEARS AGO, THERAPY ONGOING
     Route: 048
  3. ACARD 75 MG [Concomitant]
     Indication: POLYCYTHAEMIA VERA
     Dosage: DOSE: 1 TABLET, START DATE: 3 YEARS AGO, THERAPY ONGOING
     Route: 048
  4. TELMIZEK 80 MG [Concomitant]
     Indication: POLYCYTHAEMIA VERA
     Dosage: DOSE: 1/2 TABLET IN THE MORNING 1/2 TABLET IN THE EVENING; THERAPY ONGOING
     Route: 048
     Dates: start: 201904
  5. HYDROXYCARBAMIDE [Concomitant]
     Active Substance: HYDROXYUREA
     Indication: POLYCYTHAEMIA VERA
     Dosage: DOSE: 1 TABLET IN THE MORNING 1 TABLET IN THE EVENING , START DATE: 3 YEARS AGO, THERAPY ONGOING
     Route: 048

REACTIONS (3)
  - Haematochezia [Recovered/Resolved]
  - Internal haemorrhage [Recovered/Resolved]
  - Melaena [Recovered/Resolved]

NARRATIVE: CASE EVENT DATE: 201904
